FAERS Safety Report 8125376-3 (Version None)
Quarter: 2012Q1

REPORT INFORMATION
  Report Type: 
  Country: None (occurrence: None)
  Receive Date: 20120209
  Receipt Date: 20120206
  Transmission Date: 20120608
  Serious: Yes (Other)
  Sender: FDA-Public Use
  Company Number: IR-GLAXOSMITHKLINE-B0779890A

PATIENT
  Age: 6 Year
  Sex: Female

DRUGS (1)
  1. FLUTICASONE PROPIONATE [Suspect]
     Indication: RHINITIS ALLERGIC
     Dosage: 50MCG TWICE PER DAY
     Route: 065
     Dates: start: 20120123, end: 20120124

REACTIONS (2)
  - LIP OEDEMA [None]
  - CYANOSIS [None]
